FAERS Safety Report 14338526 (Version 2)
Quarter: 2018Q1

REPORT INFORMATION
  Report Type: Spontaneous
  Country: GB (occurrence: GB)
  Receive Date: 20171229
  Receipt Date: 20180212
  Transmission Date: 20180509
  Serious: Yes (Hospitalization, Other)
  Sender: FDA-Public Use
  Company Number: GB-MYLANLABS-2017M1079674

PATIENT
  Sex: Male

DRUGS (1)
  1. CLOZARIL [Suspect]
     Active Substance: CLOZAPINE
     Indication: SCHIZOPHRENIA
     Dosage: UNK
     Route: 048
     Dates: start: 20160503

REACTIONS (4)
  - Terminal state [Unknown]
  - General physical health deterioration [Unknown]
  - Nervous system disorder [Unknown]
  - Parkinson^s disease psychosis [Unknown]

NARRATIVE: CASE EVENT DATE: 2018
